FAERS Safety Report 9066810 (Version 1)
Quarter: 2013Q1

REPORT INFORMATION
  Report Type: Spontaneous
  Country: JP (occurrence: JP)
  Receive Date: 20130214
  Receipt Date: 20130214
  Transmission Date: 20140127
  Serious: Yes (Other)
  Sender: FDA-Public Use
  Company Number: JP-GLAXOSMITHKLINE-B0864159A

PATIENT
  Age: 13 None
  Sex: Female
  Weight: 46 kg

DRUGS (4)
  1. RELENZA [Suspect]
     Indication: INFLUENZA
     Dosage: 10MG TWICE PER DAY
     Route: 055
     Dates: start: 20130121, end: 20130121
  2. RESPLEN [Concomitant]
     Indication: COUGH
     Route: 048
     Dates: start: 20130121, end: 20130122
  3. CELESTAMINE [Concomitant]
     Indication: NASAL CONGESTION
     Route: 048
     Dates: start: 20130121, end: 20130122
  4. CALONAL [Concomitant]
     Indication: PYREXIA
     Route: 048
     Dates: start: 20130121, end: 20130121

REACTIONS (4)
  - Altered state of consciousness [Recovered/Resolved]
  - Fall [Recovered/Resolved]
  - Feeling abnormal [Unknown]
  - Feeling abnormal [Unknown]
